FAERS Safety Report 7252661-X (Version None)
Quarter: 2011Q1

REPORT INFORMATION
  Report Type: 
  Country: None (occurrence: None)
  Receive Date: 20110129
  Receipt Date: 20100330
  Transmission Date: 20110831
  Serious: No
  Sender: FDA-Public Use
  Company Number: US-ABBOTT-10P-163-0636427-00

PATIENT

DRUGS (2)
  1. HUMIRA [Suspect]
     Indication: RHEUMATOID ARTHRITIS
     Route: 058
     Dates: start: 20091001, end: 20100301
  2. HUMIRA [Suspect]
     Route: 058
     Dates: start: 20100301

REACTIONS (3)
  - RHEUMATOID ARTHRITIS [None]
  - BREAKTHROUGH PAIN [None]
  - JOINT SWELLING [None]
